FAERS Safety Report 10555601 (Version 1)
Quarter: 2014Q4

REPORT INFORMATION
  Report Type: Spontaneous
  Country: US (occurrence: US)
  Receive Date: 20141030
  Receipt Date: 20141030
  Transmission Date: 20150529
  Serious: Yes (Other)
  Sender: FDA-Public Use
  Company Number: US-CUBIST PHARMACEUTICALS, INC.-2014CBST000079

PATIENT

DRUGS (3)
  1. CUBICIN [Suspect]
     Active Substance: DAPTOMYCIN
     Indication: LOCALISED INFECTION
     Dosage: 270 MG, (OVER 30 MINUTE INFUSION)
     Route: 041
     Dates: start: 20140120, end: 20140120
  2. CUBICIN [Suspect]
     Active Substance: DAPTOMYCIN
     Dosage: 270 MG, (2 MINUTE PUSH)
     Route: 040
     Dates: start: 20140121, end: 20140121
  3. CUBICIN [Suspect]
     Active Substance: DAPTOMYCIN
     Dosage: 390 MG, QD (OVER 30 MINUTE INFUSION)
     Route: 041
     Dates: start: 20140122, end: 20140122

REACTIONS (1)
  - Generalised erythema [Recovered/Resolved]

NARRATIVE: CASE EVENT DATE: 20140121
